FAERS Safety Report 13718563 (Version 3)
Quarter: 2017Q4

REPORT INFORMATION
  Report Type: Spontaneous
  Country: US (occurrence: US)
  Receive Date: 20170705
  Receipt Date: 20171227
  Transmission Date: 20180320
  Serious: Yes (Hospitalization)
  Sender: FDA-Public Use
  Company Number: US-PFIZER INC-2017285647

PATIENT
  Age: 87 Year
  Sex: Female
  Weight: 60.77 kg

DRUGS (3)
  1. AROMASIN [Suspect]
     Active Substance: EXEMESTANE
     Indication: BREAST CANCER METASTATIC
     Dosage: 25 MG, 1X/DAY
     Route: 048
     Dates: start: 2015
  2. VITAMIN B [Concomitant]
     Active Substance: VITAMIN B
     Dosage: UNK
  3. AROMASIN [Suspect]
     Active Substance: EXEMESTANE
     Dosage: 25 MG, 1X/DAY
     Dates: start: 2016

REACTIONS (2)
  - Fall [Unknown]
  - Pericardial effusion [Recovered/Resolved]

NARRATIVE: CASE EVENT DATE: 20171205
